FAERS Safety Report 24273152 (Version 4)
Quarter: 2024Q4

REPORT INFORMATION
  Report Type: Spontaneous
  Country: CO (occurrence: CO)
  Receive Date: 20240902
  Receipt Date: 20241119
  Transmission Date: 20250115
  Serious: Yes (Death, Hospitalization, Other)
  Sender: GLAXOSMITHKLINE
  Company Number: CO-GLAXOSMITHKLINE-CO2024AMR106986

PATIENT

DRUGS (2)
  1. NUCALA [Suspect]
     Active Substance: MEPOLIZUMAB
     Indication: Asthma
     Dosage: 100 MG, MO (INJECTION)
     Dates: start: 20240724
  2. FUROSEMIDE [Suspect]
     Active Substance: FUROSEMIDE
     Indication: Product used for unknown indication
     Dosage: UNK

REACTIONS (13)
  - Cardiac arrest [Fatal]
  - Cardiac failure [Not Recovered/Not Resolved]
  - Peripheral swelling [Recovered/Resolved]
  - Contusion [Not Recovered/Not Resolved]
  - Choking [Not Recovered/Not Resolved]
  - Insomnia [Not Recovered/Not Resolved]
  - Suicidal ideation [Not Recovered/Not Resolved]
  - Fluid intake restriction [Not Recovered/Not Resolved]
  - Respiratory tract congestion [Unknown]
  - Swelling [Not Recovered/Not Resolved]
  - Blood glucose increased [Unknown]
  - Blood pressure decreased [Not Recovered/Not Resolved]
  - Oxygen saturation decreased [Not Recovered/Not Resolved]

NARRATIVE: CASE EVENT DATE: 20240819
